FAERS Safety Report 12259079 (Version 1)
Quarter: 2016Q2

REPORT INFORMATION
  Report Type: Spontaneous
  Country: US (occurrence: US)
  Receive Date: 20160412
  Receipt Date: 20160412
  Transmission Date: 20160815
  Serious: No
  Sender: FDA-Public Use
  Company Number: US-SA-2015SA072756

PATIENT
  Age: 10 Year
  Sex: Female
  Weight: 36.28 kg

DRUGS (1)
  1. ALLEGRA ALLERGY [Suspect]
     Active Substance: FEXOFENADINE HYDROCHLORIDE
     Route: 048

REACTIONS (4)
  - Eye pain [Unknown]
  - Overdose [Unknown]
  - Dizziness [Unknown]
  - Body temperature increased [Unknown]
